FAERS Safety Report 6829492-5 (Version None)
Quarter: 2010Q3

REPORT INFORMATION
  Report Type: 
  Country: None (occurrence: None)
  Receive Date: 20100709
  Receipt Date: 20070319
  Transmission Date: 20110219
  Serious: No
  Sender: FDA-Public Use
  Company Number: US-PFIZER INC-2007003922

PATIENT
  Sex: Female
  Weight: 48.53 kg

DRUGS (4)
  1. VARENICLINE [Suspect]
     Indication: SMOKING CESSATION THERAPY
     Dates: start: 20061211, end: 20061225
  2. PREMARIN [Concomitant]
  3. VITAMIN C [Concomitant]
  4. FISH OIL [Concomitant]

REACTIONS (2)
  - NAUSEA [None]
  - VOMITING PROJECTILE [None]
